FAERS Safety Report 22681879 (Version 6)
Quarter: 2025Q3

REPORT INFORMATION
  Report Type: Spontaneous
  Country: US (occurrence: US)
  Receive Date: 20230707
  Receipt Date: 20250814
  Transmission Date: 20251021
  Serious: No
  Sender: VERTEX
  Company Number: US-VERTEX PHARMACEUTICALS-2023-009637

PATIENT
  Age: 8 Year
  Sex: Male

DRUGS (2)
  1. TRIKAFTA [Suspect]
     Active Substance: ELEXACAFTOR\IVACAFTOR\TEZACAFTOR
     Indication: Cystic fibrosis
     Route: 048
  2. TRIKAFTA [Suspect]
     Active Substance: ELEXACAFTOR\IVACAFTOR\TEZACAFTOR
     Route: 048

REACTIONS (6)
  - Cataract [Not Recovered/Not Resolved]
  - Productive cough [Recovered/Resolved]
  - Pulmonary function test decreased [Unknown]
  - COVID-19 [Recovered/Resolved]
  - Infection [Unknown]
  - Nasopharyngitis [Recovered/Resolved]
